FAERS Safety Report 25521853 (Version 1)
Quarter: 2025Q3

REPORT INFORMATION
  Report Type: Report from Study
  Country: US (occurrence: US)
  Receive Date: 20250706
  Receipt Date: 20250706
  Transmission Date: 20251021
  Serious: Yes (Hospitalization, Other)
  Sender: ABBVIE
  Company Number: US-ABBVIE-6156228

PATIENT
  Sex: Male

DRUGS (1)
  1. RINVOQ [Suspect]
     Active Substance: UPADACITINIB
     Indication: Crohn^s disease
     Route: 048
     Dates: start: 20230901

REACTIONS (5)
  - Crohn^s disease [Unknown]
  - Pruritus [Unknown]
  - Urticaria [Unknown]
  - Malignant polyp [Unknown]
  - Blood immunoglobulin E abnormal [Unknown]
